FAERS Safety Report 16141382 (Version 5)
Quarter: 2020Q3

REPORT INFORMATION
  Report Type: Spontaneous
  Country: US (occurrence: US)
  Receive Date: 20190401
  Receipt Date: 20200817
  Transmission Date: 20201102
  Serious: No
  Sender: FDA-Public Use
  Company Number: US-PFIZER INC-2016251455

PATIENT
  Age: 80 Year
  Sex: Female

DRUGS (4)
  1. CELEBREX [Suspect]
     Active Substance: CELECOXIB
     Indication: BACK PAIN
     Dosage: 200 MG, DAILY
     Route: 048
     Dates: start: 20190918
  2. ESOMEPRAZOLE. [Concomitant]
     Active Substance: ESOMEPRAZOLE MAGNESIUM
     Dosage: 40 MG, 1X/DAY
     Route: 048
  3. CELEBREX [Suspect]
     Active Substance: CELECOXIB
     Indication: ARTHRALGIA
     Dosage: 200 MG, 1X/DAY (TAKES ONE A DAY)
     Route: 048
     Dates: start: 20160429
  4. CELEBREX [Suspect]
     Active Substance: CELECOXIB
     Indication: ARTHRALGIA
     Dosage: 200 MG, DAILY
     Route: 048
     Dates: start: 20200414

REACTIONS (5)
  - Back disorder [Unknown]
  - Arthropathy [Unknown]
  - Dysgraphia [Unknown]
  - Hypoacusis [Unknown]
  - Illness [Unknown]
